FAERS Safety Report 8912341 (Version 3)
Quarter: 2013Q1

REPORT INFORMATION
  Report Type: Spontaneous
  Country: JP (occurrence: JP)
  Receive Date: 20121116
  Receipt Date: 20130128
  Transmission Date: 20140127
  Serious: Yes (Hospitalization)
  Sender: FDA-Public Use
  Company Number: JP-ELI_LILLY_AND_COMPANY-JP201211002670

PATIENT
  Age: 74 Year
  Sex: Male
  Weight: 69.3 kg

DRUGS (11)
  1. CELECOX [Concomitant]
     Indication: CANCER PAIN
     Dosage: 200 MG, QD
     Route: 048
     Dates: start: 20110701, end: 20120101
  2. AMARYL [Concomitant]
     Indication: TYPE 2 DIABETES MELLITUS
     Dosage: 2 MG, QD
     Route: 048
     Dates: start: 20110325, end: 20111228
  3. GLYCORAN [Concomitant]
     Indication: TYPE 2 DIABETES MELLITUS
     Dosage: 750 MG, QD
     Route: 048
     Dates: start: 20110401, end: 20111228
  4. FUROSEMIDE [Concomitant]
     Indication: HYPERTENSION
     Dosage: 20 MG, QD
     Route: 048
     Dates: start: 20110513, end: 20120101
  5. PROMAC [Concomitant]
     Indication: GASTRIC ULCER
     Dosage: 150 MG, QD
     Route: 048
     Dates: start: 20110624, end: 20120101
  6. RIBALL [Concomitant]
     Indication: HYPERURICAEMIA
     Dosage: 100 MG, QD
     Route: 048
     Dates: start: 20110325, end: 20120130
  7. RIBALL [Concomitant]
     Dosage: 200 MG, QD
     Route: 048
     Dates: start: 20120131
  8. GEMZAR [Suspect]
     Indication: PANCREATIC CARCINOMA STAGE IV
     Dosage: 1000 MG/M2, 3/W
     Route: 042
     Dates: start: 20110318, end: 20121202
  9. TAKEPRON [Concomitant]
     Indication: GASTRIC ULCER
     Dosage: 15 MG, QD
     Route: 048
     Dates: start: 20110317
  10. GASMOTIN [Concomitant]
     Indication: GASTRIC ULCER
     Dosage: 15 MG, QD
     Route: 048
     Dates: start: 20110325
  11. HARNAL [Concomitant]
     Indication: BENIGN PROSTATIC HYPERPLASIA
     Dosage: 0.2 MG, QD
     Route: 048
     Dates: start: 20110325, end: 20120101

REACTIONS (1)
  - Thrombotic microangiopathy [Recovering/Resolving]
